FAERS Safety Report 8517296-7 (Version None)
Quarter: 2012Q3

REPORT INFORMATION
  Report Type: 
  Country: None (occurrence: None)
  Receive Date: 20120718
  Receipt Date: 20120713
  Transmission Date: 20120928
  Serious: Yes (Other)
  Sender: FDA-Public Use
  Company Number: JP-PFIZER INC-2012171199

PATIENT
  Sex: Female

DRUGS (1)
  1. EPLERENONE [Suspect]
     Dosage: UNK
     Route: 048
     Dates: start: 20120101

REACTIONS (1)
  - POSTMENOPAUSAL HAEMORRHAGE [None]
